FAERS Safety Report 9146770 (Version 1)
Quarter: 2013Q1

REPORT INFORMATION
  Report Type: Not Available
  Country: US (occurrence: None)
  Receive Date: 20130207
  Receipt Date: 20130207
  Transmission Date: 20140127
  Serious: Yes (Death)
  Sender: FDA-Public Use
  Company Number: 2013020030

PATIENT
  Age: 58 Year
  Sex: Male

DRUGS (4)
  1. ZOLPIDEM (ZOLPIDEM) [Suspect]
  2. FENTANYL [Suspect]
  3. ETHANOL (ETHANOL) (UNKNOWN) (ETHANOL) [Suspect]
  4. ALPRAZOLAM (ALPRAZOLAM) [Suspect]

REACTIONS (1)
  - Drug abuse [None]
